FAERS Safety Report 5355474-9 (Version None)
Quarter: 2007Q2

REPORT INFORMATION
  Report Type: 
  Country: None (occurrence: None)
  Receive Date: 20070530
  Receipt Date: 20061120
  Transmission Date: 20071010
  Serious: Yes (Hospitalization, Other)
  Sender: FDA-Public Use
  Company Number: US200609002140

PATIENT
  Age: 59 Year
  Sex: Female
  Weight: 61.2 kg

DRUGS (5)
  1. ZYPREXA [Suspect]
     Indication: DEPRESSION
     Dosage: 10 MG
     Dates: start: 20031108, end: 20050804
  2. SEROQUEL [Concomitant]
  3. LAMICTAL [Concomitant]
  4. EFFEXOR [Concomitant]
  5. CELEXA [Concomitant]

REACTIONS (6)
  - BIPOLAR DISORDER [None]
  - DIABETIC COMA [None]
  - DIABETIC KETOACIDOSIS [None]
  - INSULIN-REQUIRING TYPE II DIABETES MELLITUS [None]
  - LOSS OF CONSCIOUSNESS [None]
  - METABOLIC DISORDER [None]
